FAERS Safety Report 4823840-3 (Version None)
Quarter: 2005Q4

REPORT INFORMATION
  Report Type: 
  Country: None (occurrence: None)
  Receive Date: 20051109
  Receipt Date: 20051027
  Transmission Date: 20060501
  Serious: Yes (Death)
  Sender: FDA-Public Use
  Company Number: 2005AP05572

PATIENT
  Age: 71 Year
  Sex: Female

DRUGS (4)
  1. SEROQUEL [Suspect]
     Indication: DELUSIONAL DISORDER, PERSECUTORY TYPE
     Dosage: 100 - 200 MG  BID
     Route: 048
     Dates: start: 20050908, end: 20051003
  2. CAPTOPRIL [Concomitant]
     Route: 048
  3. CEDOCARD [Concomitant]
     Route: 048
  4. CEFOPERAZONE SODIUM [Concomitant]

REACTIONS (2)
  - DEATH [None]
  - LEUKOPENIA [None]
